FAERS Safety Report 11837987 (Version 2)
Quarter: 2016Q1

REPORT INFORMATION
  Report Type: Spontaneous
  Country: US (occurrence: US)
  Receive Date: 20151215
  Receipt Date: 20160202
  Transmission Date: 20160525
  Serious: Yes (Hospitalization, Other)
  Sender: FDA-Public Use
  Company Number: US-PFIZER INC-2015438187

PATIENT
  Age: 65 Year
  Sex: Female
  Weight: 48 kg

DRUGS (12)
  1. LIPITOR [Suspect]
     Active Substance: ATORVASTATIN CALCIUM
     Indication: BLOOD CHOLESTEROL INCREASED
     Dosage: 10 MG, 1X/DAY
     Dates: start: 2007, end: 2007
  2. COZAAR [Concomitant]
     Active Substance: LOSARTAN POTASSIUM
     Indication: HYPERTENSION
     Dosage: UNK, 2X/DAY
  3. PEPCID [Concomitant]
     Active Substance: FAMOTIDINE
     Indication: OESOPHAGEAL HYPOMOTILITY
     Dosage: UNK
  4. CRESTOR [Suspect]
     Active Substance: ROSUVASTATIN CALCIUM
     Indication: BLOOD CHOLESTEROL DECREASED
  5. CALTRATE [Concomitant]
     Active Substance: CALCIUM CARBONATE
     Indication: OSTEOPOROSIS
     Dosage: UNK
  6. CRESTOR [Suspect]
     Active Substance: ROSUVASTATIN CALCIUM
     Indication: BLOOD CHOLESTEROL
     Dosage: 5 MG, 1X/DAY
  7. METOPROLOL. [Concomitant]
     Active Substance: METOPROLOL
     Indication: HEART RATE INCREASED
     Dosage: 0.25 DF, 1X/DAY
  8. METOPROLOL. [Concomitant]
     Active Substance: METOPROLOL
     Indication: BLOOD PRESSURE ABNORMAL
     Dosage: 0.25 DF, 2X/DAY
     Dates: start: 20120319
  9. FAMOTIDINE. [Concomitant]
     Active Substance: FAMOTIDINE
     Indication: OESOPHAGEAL ACHALASIA
     Dosage: UNK
  10. LIPITOR [Suspect]
     Active Substance: ATORVASTATIN CALCIUM
     Dosage: AT THE LOWEST DOSE
     Dates: start: 2011
  11. AMARYL [Concomitant]
     Active Substance: GLIMEPIRIDE
     Indication: BLOOD GLUCOSE INCREASED
     Dosage: UNK
     Dates: start: 2012
  12. AMARYL [Concomitant]
     Active Substance: GLIMEPIRIDE
     Indication: DIABETES MELLITUS
     Dosage: UNK
     Dates: start: 2011

REACTIONS (3)
  - Myocardial infarction [Recovered/Resolved]
  - Myalgia [Not Recovered/Not Resolved]
  - Pain [Not Recovered/Not Resolved]

NARRATIVE: CASE EVENT DATE: 2007
